FAERS Safety Report 4595992-4 (Version None)
Quarter: 2005Q1

REPORT INFORMATION
  Report Type: 
  Country: None (occurrence: None)
  Receive Date: 20050225
  Receipt Date: 20050215
  Transmission Date: 20050727
  Serious: Yes (Other)
  Sender: FDA-Public Use
  Company Number: HQWYE352515FEB05

PATIENT
  Sex: 0

DRUGS (1)
  1. CORDARONE [Suspect]
     Dosage: LOADING DOSE INTRAVENOUS
     Route: 042

REACTIONS (1)
  - CHOLESTASIS [None]
